FAERS Safety Report 13994912 (Version 1)
Quarter: 2017Q3

REPORT INFORMATION
  Report Type: Spontaneous
  Country: US (occurrence: None)
  Receive Date: 20170921
  Receipt Date: 20170921
  Transmission Date: 20171128
  Serious: Yes (Other)
  Sender: FDA-Public Use
  Company Number: None

PATIENT
  Sex: Female
  Weight: 77.11 kg

DRUGS (2)
  1. FORTEO [Suspect]
     Active Substance: TERIPARATIDE
     Indication: OSTEOPOROSIS
     Dosage: 20MCG DAILY SUBQ?SHIPPED OCT2016- ONGOING
     Route: 058
     Dates: start: 201610
  2. FORTEO [Suspect]
     Active Substance: TERIPARATIDE
     Indication: TIBIA FRACTURE
     Dosage: 20MCG DAILY SUBQ?SHIPPED OCT2016- ONGOING
     Route: 058
     Dates: start: 201610

REACTIONS (1)
  - Constipation [None]
